FAERS Safety Report 14998731 (Version 2)
Quarter: 2018Q3

REPORT INFORMATION
  Report Type: Report from Study
  Country: DE (occurrence: DE)
  Receive Date: 20180612
  Receipt Date: 20180724
  Transmission Date: 20181010
  Serious: Yes (Other)
  Sender: FDA-Public Use
  Company Number: DE-MERCK KGAA-2049268

PATIENT
  Sex: Male
  Weight: 4 kg

DRUGS (6)
  1. NOVOTHYROX [Suspect]
     Active Substance: LEVOTHYROXINE SODIUM
     Indication: PRODUCT USED FOR UNKNOWN INDICATION
  2. DICLOFENAC [Suspect]
     Active Substance: DICLOFENAC
  3. PARACETAMOL [Suspect]
     Active Substance: ACETAMINOPHEN
  4. LYNESTRENOL [Suspect]
     Active Substance: LYNESTRENOL
  5. OMEPRAZOLE. [Suspect]
     Active Substance: OMEPRAZOLE
  6. IBUPROFEN. [Suspect]
     Active Substance: IBUPROFEN

REACTIONS (8)
  - Macrocephaly [Unknown]
  - Pyloric stenosis [Unknown]
  - Atrial septal defect [Unknown]
  - Foetal exposure during pregnancy [Recovered/Resolved]
  - Cerebral atrophy [Unknown]
  - Pupils unequal [Unknown]
  - Splenomegaly [Unknown]
  - Maternal drugs affecting foetus [None]
